FAERS Safety Report 15996857 (Version 3)
Quarter: 2019Q1

REPORT INFORMATION
  Report Type: Report from Study
  Country: US (occurrence: US)
  Receive Date: 20190222
  Receipt Date: 20190311
  Transmission Date: 20190418
  Serious: No
  Sender: FDA-Public Use
  Company Number: US-JNJFOC-20190225991

PATIENT
  Age: 62 Year
  Sex: Female

DRUGS (27)
  1. METHOTREXATE. [Concomitant]
     Active Substance: METHOTREXATE
     Route: 048
     Dates: start: 2012
  2. CLARITIN [Concomitant]
     Active Substance: LORATADINE
     Route: 048
     Dates: start: 20181130
  3. DILAUDID [Concomitant]
     Active Substance: HYDROMORPHONE HYDROCHLORIDE
     Indication: PATELLA FRACTURE
     Route: 042
     Dates: start: 20170709, end: 20170712
  4. MILK OF MAGNESIA [Concomitant]
     Active Substance: MAGNESIUM HYDROXIDE
     Indication: PATELLA FRACTURE
     Route: 048
     Dates: start: 20170710
  5. FERROUS SULFATE. [Concomitant]
     Active Substance: FERROUS SULFATE
     Indication: PATELLA FRACTURE
     Route: 048
     Dates: start: 20170712
  6. SIMPONI ARIA [Suspect]
     Active Substance: GOLIMUMAB
     Indication: RHEUMATOID ARTHRITIS
     Route: 042
     Dates: start: 20160603, end: 20160603
  7. CLARITIN [Concomitant]
     Active Substance: LORATADINE
     Route: 048
     Dates: start: 20160603
  8. KETOROLAC [Concomitant]
     Active Substance: KETOROLAC\KETOROLAC TROMETHAMINE
     Indication: PATELLA FRACTURE
     Route: 042
     Dates: start: 20170710, end: 20170712
  9. PREDNISONE. [Concomitant]
     Active Substance: PREDNISONE
     Indication: CONDITION AGGRAVATED
     Route: 048
     Dates: start: 20171121
  10. IBUPROFEN. [Concomitant]
     Active Substance: IBUPROFEN
     Route: 048
     Dates: start: 2012
  11. HYDROCODONE/ACETAMINOPHEN [Concomitant]
     Active Substance: ACETAMINOPHEN\HYDROCODONE
     Dosage: 10/325 MG
     Route: 065
     Dates: start: 2011
  12. PYRIDOXINE [Concomitant]
     Active Substance: PYRIDOXINE
     Indication: TUBERCULOSIS
     Route: 048
     Dates: start: 20160426
  13. ONDANSETRON HCL [Concomitant]
     Active Substance: ONDANSETRON HYDROCHLORIDE
     Indication: PATELLA FRACTURE
     Route: 042
     Dates: start: 20170710, end: 20170712
  14. TEMAZEPAM. [Concomitant]
     Active Substance: TEMAZEPAM
     Indication: PATELLA FRACTURE
     Route: 048
     Dates: start: 20170710
  15. SIMPONI ARIA [Suspect]
     Active Substance: GOLIMUMAB
     Indication: RHEUMATOID ARTHRITIS
     Route: 042
     Dates: start: 20181130, end: 20181130
  16. ZOFRAN [Concomitant]
     Active Substance: ONDANSETRON HYDROCHLORIDE
     Indication: PATELLA FRACTURE
     Route: 042
     Dates: start: 20170709, end: 20170712
  17. LORAZEPAM. [Concomitant]
     Active Substance: LORAZEPAM
     Indication: PATELLA FRACTURE
     Route: 048
     Dates: start: 20170710
  18. GABAPENTIN. [Concomitant]
     Active Substance: GABAPENTIN
     Route: 048
     Dates: start: 20160412
  19. ISONIAZID. [Concomitant]
     Active Substance: ISONIAZID
     Indication: TUBERCULOSIS
     Route: 048
     Dates: start: 20160426
  20. SUPER B COMPLEX [Concomitant]
     Active Substance: CYANOCOBALAMIN\DEXPANTHENOL\NIACINAMIDE\PYRIDOXINE HYDROCHLORIDE\RIBOFLAVIN 5^-PHOSPHATE SODIUM\THIAMINE HYDROCHLORIDE\VITAMIN B COMPLEX
     Indication: VITAMIN SUPPLEMENTATION
     Route: 048
     Dates: start: 2012
  21. HYDROCODONE [Concomitant]
     Active Substance: HYDROCODONE
     Indication: PATELLA FRACTURE
     Route: 048
     Dates: start: 20170710
  22. NACL [Concomitant]
     Active Substance: SODIUM CHLORIDE
     Indication: PATELLA FRACTURE
     Route: 042
     Dates: start: 20170710, end: 20170712
  23. ACETAMINOPHEN. [Concomitant]
     Active Substance: ACETAMINOPHEN
     Route: 048
     Dates: start: 20160603
  24. ACETAMINOPHEN. [Concomitant]
     Active Substance: ACETAMINOPHEN
     Route: 048
     Dates: start: 20181130
  25. CALCIUM [Concomitant]
     Active Substance: CALCIUM
     Indication: VITAMIN SUPPLEMENTATION
     Route: 048
     Dates: start: 2012
  26. ACETAMINOPHEN. [Concomitant]
     Active Substance: ACETAMINOPHEN
     Indication: PATELLA FRACTURE
     Route: 042
     Dates: start: 20170710
  27. HYDROMORPHONE [Concomitant]
     Active Substance: HYDROMORPHONE
     Indication: PATELLA FRACTURE
     Route: 042
     Dates: start: 20170710, end: 20170712

REACTIONS (1)
  - Malignant melanoma [Recovering/Resolving]

NARRATIVE: CASE EVENT DATE: 20181201
